FAERS Safety Report 6575648-9 (Version None)
Quarter: 2010Q1

REPORT INFORMATION
  Report Type: 
  Country: None (occurrence: None)
  Receive Date: 20100208
  Receipt Date: 20100208
  Transmission Date: 20100710
  Serious: Yes (Other)
  Sender: FDA-Public Use
  Company Number: None

PATIENT
  Age: 56 Year
  Sex: Female
  Weight: 56.6996 kg

DRUGS (1)
  1. LEVAQUIN [Suspect]
     Indication: PNEUMONIA
     Dosage: 500MG 1 TIME PER DAY PO
     Route: 048
     Dates: start: 20100125, end: 20100128

REACTIONS (9)
  - ASTHENIA [None]
  - BODY TEMPERATURE DECREASED [None]
  - FATIGUE [None]
  - FEELING COLD [None]
  - INSOMNIA [None]
  - MENTAL STATUS CHANGES [None]
  - MOOD ALTERED [None]
  - SUICIDAL IDEATION [None]
  - TENDONITIS [None]
